FAERS Safety Report 10480829 (Version 1)
Quarter: 2014Q3

REPORT INFORMATION
  Report Type: Spontaneous
  Country: US (occurrence: US)
  Receive Date: 20140929
  Receipt Date: 20140929
  Transmission Date: 20150326
  Serious: Yes (Other)
  Sender: FDA-Public Use
  Company Number: US-BAYER-2014-139258

PATIENT
  Age: 39 Year
  Sex: Female

DRUGS (3)
  1. IRON [FERROUS SULFATE] [Concomitant]
     Route: 042
  2. NIFEDIPINE. [Suspect]
     Active Substance: NIFEDIPINE
     Indication: HYPERTENSION
  3. CARVEDILOL. [Concomitant]
     Active Substance: CARVEDILOL

REACTIONS (4)
  - Premature delivery [None]
  - Exposure during pregnancy [None]
  - Drug ineffective [None]
  - Liver function test abnormal [None]
